FAERS Safety Report 7013401-2 (Version None)
Quarter: 2010Q3

REPORT INFORMATION
  Report Type: 
  Country: None (occurrence: None)
  Receive Date: 20100924
  Receipt Date: 20100917
  Transmission Date: 20110219
  Serious: Yes (Hospitalization)
  Sender: FDA-Public Use
  Company Number: JP-BRISTOL-MYERS SQUIBB COMPANY-15299183

PATIENT
  Age: 74 Year
  Sex: Male
  Weight: 63 kg

DRUGS (3)
  1. ABILIFY [Suspect]
     Indication: SCHIZOPHRENIA
     Dosage: UNK-27MAY2010(18MG) 28-30MAY10(24MG) 31MAY-04JUN10(30MG) 05-JUN-07JUN10(18MG)
     Route: 048
  2. HYPADIL [Concomitant]
     Dosage: EYE DROPS
     Route: 031
  3. KARY UNI [Concomitant]
     Dosage: EYE DROPS
     Route: 031

REACTIONS (7)
  - ALTERED STATE OF CONSCIOUSNESS [None]
  - BLOOD PRESSURE INCREASED [None]
  - HYPERHIDROSIS [None]
  - MUSCLE RIGIDITY [None]
  - PYREXIA [None]
  - TACHYCARDIA [None]
  - TACHYPNOEA [None]
